FAERS Safety Report 6849785-5 (Version None)
Quarter: 2010Q3

REPORT INFORMATION
  Report Type: 
  Country: None (occurrence: None)
  Receive Date: 20100716
  Receipt Date: 20071008
  Transmission Date: 20110219
  Serious: No
  Sender: FDA-Public Use
  Company Number: US-PFIZER INC-2007084601

PATIENT
  Sex: Female

DRUGS (3)
  1. CHANTIX [Suspect]
     Dates: start: 20071008
  2. CEPHALEXIN [Suspect]
     Indication: EAR INFECTION
     Dates: start: 20071006
  3. CEPHALEXIN [Suspect]
     Indication: PHARYNGITIS

REACTIONS (1)
  - ABDOMINAL DISCOMFORT [None]
